FAERS Safety Report 18729060 (Version 1)
Quarter: 2021Q1

REPORT INFORMATION
  Report Type: Spontaneous
  Country: US (occurrence: US)
  Receive Date: 20210111
  Receipt Date: 20210111
  Transmission Date: 20210419
  Serious: Yes (Hospitalization)
  Sender: FDA-Public Use
  Company Number: None

PATIENT
  Age: 51 Year
  Sex: Female
  Weight: 117.7 kg

DRUGS (4)
  1. BAMLANIVIMAB. [Suspect]
     Active Substance: BAMLANIVIMAB
     Indication: SARS-COV-2 TEST POSITIVE
     Dosage: ?          OTHER FREQUENCY:ONCE;?
     Route: 041
     Dates: start: 20201228, end: 20201228
  2. 0.9% SOD CHLORIDE FLUID [Concomitant]
     Dates: start: 20210101, end: 20210101
  3. MORPHINE 4MG THEN 2MG IVPUSH [Concomitant]
     Dates: start: 20210101, end: 20210101
  4. PROMETHAZINE  25MG IVPB [Concomitant]
     Dates: start: 20210101, end: 20210101

REACTIONS (3)
  - Abdominal pain [None]
  - Nausea [None]
  - Vomiting [None]

NARRATIVE: CASE EVENT DATE: 20210101
